FAERS Safety Report 9029294 (Version 2)
Quarter: 2013Q1

REPORT INFORMATION
  Report Type: Spontaneous
  Country: FR (occurrence: FR)
  Receive Date: 20130125
  Receipt Date: 20130131
  Transmission Date: 20140127
  Serious: Yes (Hospitalization)
  Sender: FDA-Public Use
  Company Number: FR-BAYER-2013-008373

PATIENT
  Age: 23 Year
  Sex: Male

DRUGS (8)
  1. IZILOX [Suspect]
     Indication: TUBERCULOSIS
     Route: 042
  2. IZILOX [Suspect]
     Indication: MALABSORPTION
  3. IZILOX [Suspect]
     Indication: CEREBRAL DISORDER
  4. IZILOX [Suspect]
     Indication: LIVER DISORDER
  5. IZILOX [Suspect]
     Indication: RENAL IMPAIRMENT
  6. PIRILENE [Concomitant]
  7. CYCLOSERINE [Concomitant]
  8. PAS [Concomitant]

REACTIONS (11)
  - Agitation [None]
  - Hyperthermia [None]
  - Malaise [None]
  - Off label use [None]
  - Diarrhoea [None]
  - Hyperhidrosis [None]
  - Headache [None]
  - Asthenia [None]
  - Blood pressure increased [None]
  - Tachycardia [None]
  - Pruritus [None]
